FAERS Safety Report 7862528-1 (Version None)
Quarter: 2011Q4

REPORT INFORMATION
  Report Type: 
  Country: None (occurrence: None)
  Receive Date: 20111027
  Receipt Date: 20101109
  Transmission Date: 20120403
  Serious: No
  Sender: FDA-Public Use
  Company Number: US-AMGEN-USASP2010003990

PATIENT
  Sex: Female

DRUGS (2)
  1. ENBREL [Suspect]
     Indication: RHEUMATOID ARTHRITIS
     Dates: start: 20050501
  2. METHOTREXATE [Concomitant]
     Dosage: 4 MG, QWK
     Dates: start: 20100501

REACTIONS (2)
  - RHEUMATOID ARTHRITIS [None]
  - URINARY TRACT INFECTION [None]
